FAERS Safety Report 7657543-7 (Version None)
Quarter: 2011Q3

REPORT INFORMATION
  Report Type: 
  Country: None (occurrence: None)
  Receive Date: 20110804
  Receipt Date: 20110726
  Transmission Date: 20111222
  Serious: Yes (Hospitalization)
  Sender: FDA-Public Use
  Company Number: US-AMGEN-USASP2011032644

PATIENT
  Age: 71 Year
  Sex: Female
  Weight: 52.154 kg

DRUGS (11)
  1. SERTRALINE HYDROCHLORIDE [Concomitant]
     Dosage: 200 MG, QD
  2. METHOTREXATE [Concomitant]
     Dosage: 12.5 MG, QWK
  3. ENBREL [Suspect]
     Indication: RHEUMATOID ARTHRITIS
     Dosage: 25 MG, 2 TIMES/WK
     Dates: start: 20070313, end: 20110118
  4. MIRAPEX [Concomitant]
  5. TRAMADOL HCL [Concomitant]
  6. ENBREL [Suspect]
     Dosage: 25 MG, 2 TIMES/WK
     Dates: start: 20110516
  7. LOVAZA [Concomitant]
     Dosage: UNK UNK, BID
  8. TOPROL-XL [Concomitant]
  9. STARLIX [Concomitant]
  10. PREDNISONE [Concomitant]
     Dosage: 7.5 MG, QD
  11. SOMA [Concomitant]

REACTIONS (6)
  - LUNG INFECTION [None]
  - PULMONARY FIBROSIS [None]
  - INJECTION SITE HAEMORRHAGE [None]
  - ANGINA PECTORIS [None]
  - INJECTION SITE HAEMATOMA [None]
  - MYOCARDIAL INFARCTION [None]
